FAERS Safety Report 14833884 (Version 1)
Quarter: 2018Q2

REPORT INFORMATION
  Report Type: Spontaneous
  Country: US (occurrence: US)
  Receive Date: 20180501
  Receipt Date: 20180501
  Transmission Date: 20180711
  Serious: No
  Sender: FDA-Public Use
  Company Number: US-ROCHE-1945202

PATIENT
  Sex: Female

DRUGS (6)
  1. AVASTIN [Suspect]
     Active Substance: BEVACIZUMAB
     Indication: LUNG NEOPLASM MALIGNANT
     Route: 042
     Dates: start: 20170320
  2. DIPHENHYDRAMINE. [Concomitant]
     Active Substance: DIPHENHYDRAMINE
     Indication: LUNG NEOPLASM MALIGNANT
     Route: 042
     Dates: start: 20170320
  3. GRANISETRON [Concomitant]
     Active Substance: GRANISETRON
     Indication: LUNG NEOPLASM MALIGNANT
     Route: 042
     Dates: start: 20170320
  4. PACLITAXEL. [Concomitant]
     Active Substance: PACLITAXEL
     Indication: LUNG NEOPLASM MALIGNANT
     Route: 042
     Dates: start: 20170320
  5. CARBOPLATIN. [Concomitant]
     Active Substance: CARBOPLATIN
     Indication: LUNG NEOPLASM MALIGNANT
     Route: 042
     Dates: start: 20170320
  6. DEXAMETHASONE. [Concomitant]
     Active Substance: DEXAMETHASONE
     Indication: LUNG NEOPLASM MALIGNANT
     Route: 042
     Dates: start: 20170320

REACTIONS (4)
  - Abdominal pain upper [Unknown]
  - Nausea [Unknown]
  - Headache [Unknown]
  - Vomiting [Unknown]
